FAERS Safety Report 25774151 (Version 1)
Quarter: 2025Q3

REPORT INFORMATION
  Report Type: Report from Study
  Country: JP (occurrence: JP)
  Receive Date: 20250908
  Receipt Date: 20250908
  Transmission Date: 20251020
  Serious: Yes (Death, Other)
  Sender: OTSUKA
  Company Number: JP-MMM-Otsuka-J3TY2R9A

PATIENT
  Age: 78 Year
  Sex: Female
  Weight: 35 kg

DRUGS (14)
  1. BREXPIPRAZOLE [Suspect]
     Active Substance: BREXPIPRAZOLE
     Indication: Dementia Alzheimer^s type
     Dosage: 0.5 MG/DAY, ONCE DAILY
     Route: 048
     Dates: start: 20250617, end: 20250723
  2. BREXPIPRAZOLE [Suspect]
     Active Substance: BREXPIPRAZOLE
     Indication: Irritability
  3. BREXPIPRAZOLE [Suspect]
     Active Substance: BREXPIPRAZOLE
     Indication: Irritability
  4. BREXPIPRAZOLE [Suspect]
     Active Substance: BREXPIPRAZOLE
     Indication: Agitation
  5. BREXPIPRAZOLE [Suspect]
     Active Substance: BREXPIPRAZOLE
     Indication: Psychomotor hyperactivity
  6. BREXPIPRAZOLE [Suspect]
     Active Substance: BREXPIPRAZOLE
     Indication: Aggression
  7. PREDNISOLONE [Concomitant]
     Active Substance: PREDNISOLONE
     Indication: Disease complication
     Dosage: 5 MG/DAY
     Route: 048
     Dates: end: 20250723
  8. ELDECALCITOL [Concomitant]
     Active Substance: ELDECALCITOL
     Indication: Disease complication
     Dosage: 0.75 MCG/DAY
     Route: 048
     Dates: end: 20250723
  9. FOLIC ACID [Concomitant]
     Active Substance: FOLIC ACID
     Indication: Prophylaxis
     Route: 048
     Dates: end: 20250723
  10. METHOTREXATE [Concomitant]
     Active Substance: METHOTREXATE
     Indication: Disease complication
     Dosage: 12 MG/DAY
     Route: 048
     Dates: end: 20250723
  11. LANSOPRAZOLE [Concomitant]
     Active Substance: LANSOPRAZOLE
     Indication: Disease complication
     Dosage: 15 MG/DAY
     Route: 048
     Dates: start: 20250613, end: 20250723
  12. ESZOPICLONE [Concomitant]
     Active Substance: ESZOPICLONE
     Indication: Neuropsychological symptoms
     Dosage: 1 MG/DAY
     Route: 048
     Dates: start: 20250610, end: 20250723
  13. CARBAZOCHROME SODIUM SULFONATE [Concomitant]
     Active Substance: CARBAZOCHROME SODIUM SULFONATE
     Indication: Disease complication
     Dosage: 90 MG/DAY
     Route: 048
     Dates: start: 20250617, end: 20250723
  14. SODIUM FERROUS CITRATE [Concomitant]
     Active Substance: SODIUM FERROUS CITRATE
     Indication: Disease complication
     Dosage: 200 MG/DAY
     Route: 048
     Dates: start: 20250619, end: 20250723

REACTIONS (2)
  - Death [Fatal]
  - Urinary tract infection [Recovered/Resolved]

NARRATIVE: CASE EVENT DATE: 20250626
